FAERS Safety Report 23606157 (Version 14)
Quarter: 2025Q3

REPORT INFORMATION
  Report Type: Report from Study
  Country: EU (occurrence: EU)
  Receive Date: 20240307
  Receipt Date: 20250705
  Transmission Date: 20251021
  Serious: Yes (Other)
  Sender: TAKEDA
  Company Number: EU-TAKEDA-2024TUS017303

PATIENT
  Age: 25 Year
  Sex: Female
  Weight: 75 kg

DRUGS (6)
  1. APADAMTASE ALFA [Suspect]
     Active Substance: APADAMTASE ALFA
     Indication: Congenital thrombotic thrombocytopenic purpura
  2. APADAMTASE ALFA [Suspect]
     Active Substance: APADAMTASE ALFA
     Dosage: 1500 INTERNATIONAL UNIT, BID
  3. APADAMTASE ALFA [Suspect]
     Active Substance: APADAMTASE ALFA
     Dosage: 3000 INTERNATIONAL UNIT, 2/WEEK
  4. Folinal [Concomitant]
     Indication: Breast feeding
     Dosage: 200 MILLIGRAM, QD
     Dates: start: 20240617
  5. FERROUS SULFATE [Concomitant]
     Active Substance: FERROUS SULFATE
  6. FOLIC ACID [Concomitant]
     Active Substance: FOLIC ACID
     Indication: Lactation insufficiency
     Dosage: 5 MILLIGRAM, QD
     Dates: start: 20231014

REACTIONS (14)
  - Placental insufficiency [Unknown]
  - Vulvovaginal injury [Unknown]
  - Vaginal haemorrhage [Unknown]
  - Breast pain [Recovered/Resolved]
  - Asthenia [Recovered/Resolved]
  - Pregnancy [Recovered/Resolved]
  - Abdominal pain upper [Recovered/Resolved]
  - Vaginal infection [Recovered/Resolved]
  - Arthralgia [Recovered/Resolved]
  - Fungal infection [Unknown]
  - Nasopharyngitis [Recovered/Resolved]
  - Vulvovaginal mycotic infection [Recovered/Resolved]
  - Breast feeding [Not Recovered/Not Resolved]
  - Abdominal pain [Recovered/Resolved]

NARRATIVE: CASE EVENT DATE: 20240219
